FAERS Safety Report 13880832 (Version 1)
Quarter: 2017Q3

REPORT INFORMATION
  Report Type: Report from Study
  Country: US (occurrence: US)
  Receive Date: 20170818
  Receipt Date: 20170818
  Transmission Date: 20171127
  Serious: Yes (Death, Life-Threatening)
  Sender: FDA-Public Use
  Company Number: US-TESARO, INC.-US-2016TSO00298

PATIENT
  Age: 43 Year
  Sex: Female

DRUGS (22)
  1. NIRAPARIB [Suspect]
     Active Substance: NIRAPARIB
     Indication: TRIPLE NEGATIVE BREAST CANCER
     Dosage: 300 MG, QD
     Route: 048
     Dates: start: 20160902, end: 20161012
  2. PEMBROLIZUMAB. [Suspect]
     Active Substance: PEMBROLIZUMAB
     Indication: TRIPLE NEGATIVE BREAST CANCER
     Dosage: 200 MG, EVERY 21 DAYS
     Route: 042
     Dates: start: 20160902, end: 20160902
  3. OXYCODONE [Concomitant]
     Active Substance: OXYCODONE
     Indication: MUSCULOSKELETAL PAIN
  4. SENOKOT [Concomitant]
     Active Substance: SENNOSIDES
     Indication: CONSTIPATION
     Dosage: 17.2 MG, HS (AT BEDTIME)
     Route: 048
     Dates: start: 201609
  5. PROPANOLOL                         /00030001/ [Concomitant]
     Active Substance: PROPRANOLOL HYDROCHLORIDE
     Indication: TACHYCARDIA
     Dosage: 10 MG, TID
     Route: 048
     Dates: start: 20161005
  6. FENTANYL. [Concomitant]
     Active Substance: FENTANYL
     Indication: CENTRAL VENOUS CATHETERISATION
     Dosage: 300 ?G, SINGLE
     Route: 042
     Dates: start: 20160923, end: 20160923
  7. FLUMAZENIL. [Concomitant]
     Active Substance: FLUMAZENIL
     Indication: CENTRAL VENOUS CATHETERISATION
     Dosage: 0.2 MG, PRN
     Route: 042
     Dates: start: 20160923, end: 20160923
  8. IBUPROFEN. [Concomitant]
     Active Substance: IBUPROFEN
     Indication: NECK PAIN
     Dosage: 400 MG, PRN
     Route: 048
     Dates: start: 20160825
  9. IBUPROFEN. [Concomitant]
     Active Substance: IBUPROFEN
     Indication: MUSCULOSKELETAL PAIN
  10. NARCAN [Concomitant]
     Active Substance: NALOXONE HYDROCHLORIDE
     Indication: CENTRAL VENOUS CATHETERISATION
     Dosage: 0.04 MG, PRN
     Route: 042
     Dates: start: 20160923, end: 20160923
  11. OXYCODONE [Concomitant]
     Active Substance: OXYCODONE
     Indication: NECK PAIN
     Dosage: 5 MG, Q6H PRN
     Route: 048
     Dates: start: 20160901
  12. DULCOLAX (BISACODYL) [Concomitant]
     Active Substance: BISACODYL
     Indication: CONSTIPATION
     Dosage: 5 MG, PRN
     Route: 048
     Dates: start: 20160922
  13. ANCEF [Concomitant]
     Active Substance: CEFAZOLIN SODIUM
     Indication: CENTRAL VENOUS CATHETERISATION
     Dosage: 2 G, SINGLE
     Route: 042
     Dates: start: 20160923, end: 20160923
  14. BACITRACIN. [Concomitant]
     Active Substance: BACITRACIN
     Indication: CENTRAL VENOUS CATHETERISATION
     Dosage: 25000 UNITS, MONTHLY
     Route: 042
     Dates: start: 20160923, end: 20160923
  15. CYCLOBENZAPRINE. [Concomitant]
     Active Substance: CYCLOBENZAPRINE
     Indication: MUSCLE SPASMS
     Dosage: 5 MG, PRN
     Route: 048
     Dates: start: 20160825
  16. VERSED [Concomitant]
     Active Substance: MIDAZOLAM HYDROCHLORIDE
     Indication: CENTRAL VENOUS CATHETERISATION
     Dosage: 4 MG, SINGLE
     Route: 042
     Dates: start: 20160923, end: 20160923
  17. PEMBROLIZUMAB. [Suspect]
     Active Substance: PEMBROLIZUMAB
     Dosage: 200 MG, EVERY 21 DAYS
     Route: 042
     Dates: start: 20160922, end: 20160922
  18. COMPAZINE                          /00013302/ [Concomitant]
     Active Substance: PROCHLORPERAZINE EDISYLATE
     Indication: PROPHYLAXIS OF NAUSEA AND VOMITING
     Dosage: 10 MG, PRN
     Route: 048
     Dates: start: 20160901
  19. IMODIUM [Concomitant]
     Active Substance: LOPERAMIDE HYDROCHLORIDE
     Indication: PROPHYLAXIS AGAINST DIARRHOEA
     Dosage: 2 MG, PRN
     Route: 048
     Dates: start: 20160901, end: 20161011
  20. AMBIEN [Concomitant]
     Active Substance: ZOLPIDEM TARTRATE
     Indication: INSOMNIA
     Dosage: 10 MG, PRN
     Route: 048
     Dates: start: 20161005
  21. DILAUDID [Concomitant]
     Active Substance: HYDROMORPHONE HYDROCHLORIDE
     Indication: PAIN
     Dosage: 4 MG, QD
     Route: 048
     Dates: start: 20160929
  22. ZOFRAN [Concomitant]
     Active Substance: ONDANSETRON HYDROCHLORIDE
     Indication: NAUSEA
     Dosage: 4 MG, PRN
     Route: 042
     Dates: start: 20160923, end: 20160923

REACTIONS (1)
  - Thrombocytopenia [Recovered/Resolved]

NARRATIVE: CASE EVENT DATE: 20161013
